FAERS Safety Report 12661424 (Version 9)
Quarter: 2017Q1

REPORT INFORMATION
  Report Type: Report from Study
  Country: CA (occurrence: CA)
  Receive Date: 20160817
  Receipt Date: 20170222
  Transmission Date: 20170428
  Serious: Yes (Other)
  Sender: FDA-Public Use
  Company Number: PHHY2016CA051438

PATIENT
  Age: 36 Year
  Sex: Female

DRUGS (5)
  1. SIGNIFOR [Suspect]
     Active Substance: PASIREOTIDE
     Dosage: 0.3 MG, EVERY 2 DAYS
     Route: 058
     Dates: start: 20160918, end: 20161027
  2. SIGNIFOR [Suspect]
     Active Substance: PASIREOTIDE
     Dosage: 0.3 MG, DAILY 5 DAYS PER WEEK
     Route: 058
     Dates: start: 20161028
  3. SIGNIFOR [Suspect]
     Active Substance: PASIREOTIDE
     Indication: PITUITARY-DEPENDENT CUSHING^S SYNDROME
     Dosage: 0.3 MG, BID
     Route: 058
     Dates: start: 20160413, end: 20160427
  4. KETOCONAZOLE. [Concomitant]
     Active Substance: KETOCONAZOLE
     Indication: PRODUCT USED FOR UNKNOWN INDICATION
     Route: 065
  5. SIGNIFOR [Suspect]
     Active Substance: PASIREOTIDE
     Dosage: 0.3 MG, QD
     Route: 058
     Dates: start: 20160428, end: 20160917

REACTIONS (52)
  - Stress [Unknown]
  - Arthropathy [Unknown]
  - Impatience [Unknown]
  - Malaise [Unknown]
  - Hypertension [Unknown]
  - Nausea [Unknown]
  - Sleep disorder [Unknown]
  - Dyspepsia [Unknown]
  - Palpitations [Recovered/Resolved]
  - Syncope [Unknown]
  - Fatigue [Unknown]
  - Injection site erythema [Not Recovered/Not Resolved]
  - Hypotension [Unknown]
  - Hypersomnia [Unknown]
  - Skin plaque [Unknown]
  - Dizziness [Recovered/Resolved]
  - Memory impairment [Unknown]
  - Disturbance in attention [Unknown]
  - Blood cortisol decreased [Unknown]
  - Weight increased [Unknown]
  - Arrhythmia [Unknown]
  - Choking [Unknown]
  - Liver disorder [Unknown]
  - Dyspnoea [Unknown]
  - Anxiety [Unknown]
  - Impaired healing [Unknown]
  - Irritability [Unknown]
  - Obesity [Unknown]
  - Limb discomfort [Unknown]
  - Breast pain [Unknown]
  - Blood cortisol increased [Unknown]
  - Insomnia [Unknown]
  - Gastric disorder [Unknown]
  - Hair texture abnormal [Unknown]
  - Injection site pruritus [Recovering/Resolving]
  - Blood glucose increased [Recovering/Resolving]
  - Heart rate increased [Unknown]
  - Weight decreased [Unknown]
  - Thirst [Not Recovered/Not Resolved]
  - Blood glucose abnormal [Unknown]
  - Vomiting [Unknown]
  - Amnesia [Unknown]
  - Dysphagia [Unknown]
  - Pain [Unknown]
  - Movement disorder [Unknown]
  - Pain in extremity [Unknown]
  - Dehydration [Unknown]
  - Dizziness postural [Unknown]
  - Muscular weakness [Unknown]
  - Palpitations [Recovering/Resolving]
  - Abdominal pain upper [Unknown]
  - Alopecia [Not Recovered/Not Resolved]

NARRATIVE: CASE EVENT DATE: 2016
